FAERS Safety Report 5894319-5 (Version None)
Quarter: 2008Q3

REPORT INFORMATION
  Report Type: 
  Country: None (occurrence: None)
  Receive Date: 20080922
  Receipt Date: 20080905
  Transmission Date: 20090109
  Serious: Yes (Hospitalization)
  Sender: FDA-Public Use
  Company Number: 2008S1000323

PATIENT
  Age: 51 Year
  Sex: Female
  Weight: 52 kg

DRUGS (1)
  1. CUBICIN [Suspect]
     Dosage: 9.6 MG/KG;Q24H;IV
     Route: 042
     Dates: start: 20080901, end: 20080901

REACTIONS (2)
  - CONVULSION [None]
  - REFUSAL OF TREATMENT BY RELATIVE [None]
